FAERS Safety Report 6094100-0 (Version None)
Quarter: 2009Q1

REPORT INFORMATION
  Report Type: 
  Country: None (occurrence: None)
  Receive Date: 20090226
  Receipt Date: 20090224
  Transmission Date: 20090719
  Serious: Yes (Hospitalization)
  Sender: FDA-Public Use
  Company Number: FR-PFIZER INC-2009175477

PATIENT

DRUGS (3)
  1. TAHOR [Suspect]
     Route: 048
     Dates: start: 20030101, end: 20070101
  2. CRESTOR [Suspect]
     Route: 048
     Dates: start: 20070101, end: 20080101
  3. BISOPROLOL [Suspect]
     Dosage: UNK
     Route: 048
     Dates: start: 20030101

REACTIONS (1)
  - INTERSTITIAL LUNG DISEASE [None]
